FAERS Safety Report 21684486 (Version 1)
Quarter: 2022Q4

REPORT INFORMATION
  Report Type: Spontaneous
  Country: GB (occurrence: GB)
  Receive Date: 20221205
  Receipt Date: 20221205
  Transmission Date: 20230112
  Serious: Yes (Other)
  Sender: FDA-Public Use
  Company Number: None

PATIENT
  Age: 69 Year
  Sex: Male
  Weight: 54 kg

DRUGS (7)
  1. DOXYCYCLINE [Suspect]
     Active Substance: DOXYCYCLINE
     Indication: Ill-defined disorder
     Dosage: UNK
     Dates: start: 20221125
  2. AMOXICILLIN [Concomitant]
     Active Substance: AMOXICILLIN
     Indication: Ill-defined disorder
     Dosage: UNK, 3X/DAY, TAKE ONE 3 TIMES/DAY FOR 7 DAYS
     Dates: start: 20221130
  3. DOXYCYCLINE [Concomitant]
     Active Substance: DOXYCYCLINE
     Indication: Ill-defined disorder
     Dosage: UNK, TWO NOW THEN ONE DAILY FOR A FURTHER 6 DAYS
     Dates: start: 20221125
  4. MIRTAZAPINE [Concomitant]
     Active Substance: MIRTAZAPINE
     Indication: Ill-defined disorder
     Dosage: UNK, 1X/DAY (OD)
     Dates: start: 20220824
  5. OLANZAPINE [Concomitant]
     Active Substance: OLANZAPINE
     Indication: Ill-defined disorder
     Dosage: UNK, 1X/DAY, ONE A DAY
     Dates: start: 20220824
  6. TAMSULOSIN HYDROCHLORIDE [Concomitant]
     Active Substance: TAMSULOSIN HYDROCHLORIDE
     Indication: Ill-defined disorder
     Dosage: UNK, 1X/DAY, TAKE ONE DAILY
     Dates: start: 20220824
  7. VENLAFAXINE [Concomitant]
     Active Substance: VENLAFAXINE HYDROCHLORIDE
     Indication: Ill-defined disorder
     Dosage: UNK, 1X/DAY, TAKE ONE DAILY
     Dates: start: 20220824

REACTIONS (3)
  - Oral mucosal blistering [Recovering/Resolving]
  - Dry mouth [Unknown]
  - Pruritus [Unknown]

NARRATIVE: CASE EVENT DATE: 20221130
